FAERS Safety Report 12158376 (Version 1)
Quarter: 2016Q1

REPORT INFORMATION
  Report Type: Spontaneous
  Country: US (occurrence: US)
  Receive Date: 20160308
  Receipt Date: 20160308
  Transmission Date: 20160526
  Serious: Yes (Hospitalization)
  Sender: FDA-Public Use
  Company Number: US-JNJFOC-20150205733

PATIENT
  Age: 58 Year
  Sex: Male

DRUGS (3)
  1. AMBISOME [Suspect]
     Active Substance: AMPHOTERICIN B
     Indication: PNEUMONIA CRYPTOCOCCAL
     Dates: start: 2015
  2. FLUCYTOSINE. [Suspect]
     Active Substance: FLUCYTOSINE
     Indication: PNEUMONIA CRYPTOCOCCAL
     Dates: start: 2015, end: 2015
  3. IMBRUVICA [Suspect]
     Active Substance: IBRUTINIB
     Indication: CHRONIC LYMPHOCYTIC LEUKAEMIA
     Route: 048
     Dates: start: 201404, end: 20150120

REACTIONS (11)
  - Malnutrition [Recovering/Resolving]
  - Headache [Not Recovered/Not Resolved]
  - Hypogammaglobulinaemia [Unknown]
  - Hypertension [Recovered/Resolved]
  - Vomiting [Unknown]
  - Acute kidney injury [Recovering/Resolving]
  - Pneumonia cryptococcal [Recovering/Resolving]
  - Brain abscess [Recovering/Resolving]
  - Meningitis aseptic [Recovering/Resolving]
  - CD4 lymphocytes decreased [Recovering/Resolving]
  - Fatigue [Not Recovered/Not Resolved]

NARRATIVE: CASE EVENT DATE: 2015
